FAERS Safety Report 21408300 (Version 2)
Quarter: 2023Q2

REPORT INFORMATION
  Report Type: Report from Study
  Country: GB (occurrence: GB)
  Receive Date: 20221004
  Receipt Date: 20230620
  Transmission Date: 20230721
  Serious: Yes (Hospitalization, Other)
  Sender: FDA-Public Use
  Company Number: GB-TAKEDA-GB201707215

PATIENT
  Age: 9 Year
  Sex: Male

DRUGS (182)
  1. IDURSULFASE [Suspect]
     Active Substance: IDURSULFASE
     Indication: Mucopolysaccharidosis II
     Dosage: 0.55 MILLIGRAM/KILOGRAM, 1/WEEK
     Route: 042
     Dates: start: 20070404
  2. IDURSULFASE [Suspect]
     Active Substance: IDURSULFASE
     Dosage: 0.55 MILLIGRAM/KILOGRAM, 1/WEEK
     Route: 042
     Dates: start: 20120315, end: 20140102
  3. MELATONIN [Concomitant]
     Active Substance: MELATONIN
     Indication: Nervous system disorder
     Dosage: UNK
     Route: 048
     Dates: start: 2002, end: 2011
  4. CEPHRADINE [Concomitant]
     Active Substance: CEPHRADINE
     Indication: Anti-infective therapy
     Dosage: UNK
     Route: 048
     Dates: start: 200303, end: 200303
  5. TRIMETHOPRIM [Concomitant]
     Active Substance: TRIMETHOPRIM
     Indication: Anti-infective therapy
     Dosage: UNK
     Route: 048
     Dates: start: 200303, end: 200303
  6. TRIMETHOPRIM [Concomitant]
     Active Substance: TRIMETHOPRIM
     Dosage: UNK
     Route: 048
     Dates: start: 200311, end: 2007
  7. TRIMETHOPRIM [Concomitant]
     Active Substance: TRIMETHOPRIM
     Dosage: UNK
     Route: 050
     Dates: start: 20110302, end: 20110328
  8. TRIMETHOPRIM [Concomitant]
     Active Substance: TRIMETHOPRIM
     Dosage: UNK
     Route: 050
     Dates: start: 20111118, end: 201111
  9. DICLOFENAC [Concomitant]
     Active Substance: DICLOFENAC
     Indication: Pain
     Dosage: UNK
     Route: 048
     Dates: start: 20030403, end: 20030406
  10. ONDANSETRON [Concomitant]
     Active Substance: ONDANSETRON
     Indication: Gastrointestinal disorder
     Dosage: UNK
     Route: 048
     Dates: start: 20030403, end: 20030404
  11. CODEINE PHOSPHATE [Concomitant]
     Active Substance: CODEINE PHOSPHATE
     Indication: Pain
     Dosage: UNK
     Route: 048
     Dates: start: 20040405, end: 20040405
  12. CODEINE PHOSPHATE [Concomitant]
     Active Substance: CODEINE PHOSPHATE
     Dosage: UNK
     Route: 048
     Dates: start: 20030404, end: 20030404
  13. BECLOMETHASONE DIPROPIONATE [Concomitant]
     Active Substance: BECLOMETHASONE DIPROPIONATE
     Indication: Respiratory disorder
     Dosage: UNK
     Route: 050
     Dates: start: 20030520, end: 20050412
  14. PREDNISOLONE [Concomitant]
     Active Substance: PREDNISOLONE
     Indication: Respiratory disorder
     Dosage: UNK
     Route: 048
     Dates: start: 20030520, end: 20030525
  15. PREDNISOLONE [Concomitant]
     Active Substance: PREDNISOLONE
     Dosage: UNK
     Route: 048
     Dates: start: 20050412, end: 20050417
  16. PREDNISOLONE [Concomitant]
     Active Substance: PREDNISOLONE
     Dosage: UNK
     Route: 048
     Dates: start: 20060322, end: 20060325
  17. PREDNISOLONE [Concomitant]
     Active Substance: PREDNISOLONE
     Dosage: UNK
     Route: 048
     Dates: start: 20090609, end: 20090616
  18. PREDNISOLONE [Concomitant]
     Active Substance: PREDNISOLONE
     Dosage: UNK
     Route: 048
     Dates: start: 201004, end: 201004
  19. PREDNISOLONE [Concomitant]
     Active Substance: PREDNISOLONE
     Dosage: UNK
     Route: 048
     Dates: start: 20110504, end: 2011
  20. PREDNISOLONE [Concomitant]
     Active Substance: PREDNISOLONE
     Dosage: UNK
     Route: 048
     Dates: start: 20110505, end: 20111020
  21. ALBUTEROL [Concomitant]
     Active Substance: ALBUTEROL
     Indication: Respiratory disorder
     Dosage: UNK
     Route: 050
     Dates: start: 20030520, end: 20050412
  22. ALBUTEROL [Concomitant]
     Active Substance: ALBUTEROL
     Dosage: UNK
     Route: 055
     Dates: start: 20050412, end: 20050420
  23. ALBUTEROL [Concomitant]
     Active Substance: ALBUTEROL
     Dosage: UNK
     Route: 055
     Dates: start: 20050420, end: 20050725
  24. ALBUTEROL [Concomitant]
     Active Substance: ALBUTEROL
     Dosage: UNK
     Route: 055
     Dates: start: 201009, end: 2011
  25. ALBUTEROL [Concomitant]
     Active Substance: ALBUTEROL
     Dosage: UNK
     Route: 055
     Dates: start: 2011
  26. ALBUTEROL [Concomitant]
     Active Substance: ALBUTEROL
     Dosage: UNK
     Route: 055
     Dates: start: 20110224, end: 20110224
  27. ALBUTEROL [Concomitant]
     Active Substance: ALBUTEROL
     Dosage: UNK
     Route: 055
     Dates: start: 20110225, end: 20110303
  28. CIPROFLOXACIN [Concomitant]
     Active Substance: CIPROFLOXACIN
     Indication: Anti-infective therapy
     Dosage: UNK
     Route: 048
     Dates: start: 20030930, end: 2003
  29. AUGMENTIN [Concomitant]
     Active Substance: AMOXICILLIN\CLAVULANATE POTASSIUM
     Indication: Anti-infective therapy
     Dosage: UNK
     Route: 048
     Dates: start: 20030930, end: 2003
  30. AUGMENTIN [Concomitant]
     Active Substance: AMOXICILLIN\CLAVULANATE POTASSIUM
     Dosage: UNK
     Route: 048
     Dates: start: 200504, end: 20050426
  31. AUGMENTIN [Concomitant]
     Active Substance: AMOXICILLIN\CLAVULANATE POTASSIUM
     Dosage: UNK
     Route: 048
     Dates: start: 20060322, end: 200603
  32. ACETAMINOPHEN [Concomitant]
     Active Substance: ACETAMINOPHEN
     Indication: Pain
     Dosage: UNK
     Route: 048
     Dates: start: 20031117, end: 20031117
  33. ACETAMINOPHEN [Concomitant]
     Active Substance: ACETAMINOPHEN
     Indication: Abdominal pain
     Dosage: UNK
     Route: 048
     Dates: start: 20040405, end: 20040405
  34. ACETAMINOPHEN [Concomitant]
     Active Substance: ACETAMINOPHEN
     Indication: Pyrexia
     Dosage: UNK
     Route: 048
     Dates: start: 20070530, end: 20070530
  35. ACETAMINOPHEN [Concomitant]
     Active Substance: ACETAMINOPHEN
     Dosage: UNK
     Route: 048
     Dates: start: 20070604, end: 2011
  36. ACETAMINOPHEN [Concomitant]
     Active Substance: ACETAMINOPHEN
     Dosage: UNK
     Route: 048
     Dates: start: 20110216, end: 20110225
  37. ACETAMINOPHEN [Concomitant]
     Active Substance: ACETAMINOPHEN
     Dosage: UNK
     Route: 050
     Dates: start: 20110225, end: 20110309
  38. ACETAMINOPHEN [Concomitant]
     Active Substance: ACETAMINOPHEN
     Dosage: UNK
     Route: 042
     Dates: start: 20110309, end: 20110322
  39. ACETAMINOPHEN [Concomitant]
     Active Substance: ACETAMINOPHEN
     Dosage: UNK
     Route: 042
     Dates: start: 20110309, end: 2011
  40. ACETAMINOPHEN [Concomitant]
     Active Substance: ACETAMINOPHEN
     Dosage: UNK
     Route: 042
     Dates: start: 20110322, end: 20110323
  41. ACETAMINOPHEN [Concomitant]
     Active Substance: ACETAMINOPHEN
     Dosage: UNK
     Route: 042
     Dates: start: 20110323, end: 20110329
  42. ACETAMINOPHEN [Concomitant]
     Active Substance: ACETAMINOPHEN
     Dosage: UNK
     Route: 042
     Dates: start: 20110329, end: 20110414
  43. ACETAMINOPHEN [Concomitant]
     Active Substance: ACETAMINOPHEN
     Dosage: UNK
     Route: 050
     Dates: start: 20110404, end: 20110409
  44. ACETAMINOPHEN [Concomitant]
     Active Substance: ACETAMINOPHEN
     Dosage: UNK
     Route: 042
     Dates: start: 20110414, end: 2011
  45. ACETAMINOPHEN [Concomitant]
     Active Substance: ACETAMINOPHEN
     Dosage: UNK
     Route: 050
     Dates: start: 20110505
  46. LACTULOSE [Concomitant]
     Active Substance: LACTULOSE
     Indication: Gastrointestinal disorder
     Dosage: UNK
     Route: 048
     Dates: start: 2004, end: 2004
  47. SENNA [Concomitant]
     Active Substance: SENNA LEAF\SENNOSIDES\SENNOSIDES A AND B
     Indication: Gastrointestinal disorder
     Dosage: UNK
     Route: 048
     Dates: start: 2004, end: 200403
  48. AMOXICILLIN [Concomitant]
     Active Substance: AMOXICILLIN
     Indication: Anti-infective therapy
     Dosage: UNK
     Route: 042
     Dates: start: 20040405, end: 20040405
  49. AMOXICILLIN [Concomitant]
     Active Substance: AMOXICILLIN
     Dosage: UNK
     Route: 048
     Dates: start: 200703, end: 200703
  50. AMOXICILLIN [Concomitant]
     Active Substance: AMOXICILLIN
     Dosage: UNK
     Route: 048
     Dates: start: 20110505, end: 20110512
  51. AMOXICILLIN [Concomitant]
     Active Substance: AMOXICILLIN
     Dosage: UNK
     Route: 050
     Dates: start: 201204, end: 201204
  52. FLUCLOXACILLIN [Concomitant]
     Active Substance: FLUCLOXACILLIN
     Indication: Anti-infective therapy
     Dosage: UNK
     Route: 042
     Dates: start: 20040405, end: 20040405
  53. BUDESONIDE [Concomitant]
     Active Substance: BUDESONIDE
     Indication: Respiratory disorder
     Dosage: UNK
     Route: 050
     Dates: start: 2005, end: 20070522
  54. BUDESONIDE [Concomitant]
     Active Substance: BUDESONIDE
     Dosage: UNK
     Route: 055
     Dates: start: 20050412, end: 20050420
  55. BUDESONIDE [Concomitant]
     Active Substance: BUDESONIDE
     Dosage: UNK
     Route: 055
     Dates: start: 20050420, end: 2005
  56. LORATADINE [Concomitant]
     Active Substance: LORATADINE
     Indication: Respiratory disorder
     Dosage: UNK
     Route: 048
     Dates: start: 2005, end: 20050725
  57. LORATADINE [Concomitant]
     Active Substance: LORATADINE
     Dosage: UNK
     Route: 050
     Dates: start: 201107, end: 201108
  58. LORATADINE [Concomitant]
     Active Substance: LORATADINE
     Dosage: UNK
     Route: 050
     Dates: start: 201205, end: 201208
  59. ENALAPRIL [Concomitant]
     Active Substance: ENALAPRIL
     Indication: Cardiovascular disorder
     Dosage: UNK
     Route: 048
     Dates: start: 20050505, end: 20050729
  60. ENALAPRIL [Concomitant]
     Active Substance: ENALAPRIL
     Dosage: UNK
     Route: 048
     Dates: start: 20050729, end: 20070514
  61. ENALAPRIL [Concomitant]
     Active Substance: ENALAPRIL
     Dosage: UNK
     Route: 048
     Dates: start: 20070514
  62. CEFACLOR [Concomitant]
     Active Substance: CEFACLOR
     Indication: Anti-infective therapy
     Dosage: UNK
     Route: 048
     Dates: start: 20050610, end: 20050617
  63. ERYTHROMYCIN [Concomitant]
     Active Substance: ERYTHROMYCIN
     Indication: Anti-infective therapy
     Dosage: UNK
     Route: 048
     Dates: start: 20051005, end: 20051015
  64. ERYTHROMYCIN [Concomitant]
     Active Substance: ERYTHROMYCIN
     Dosage: UNK
     Route: 050
     Dates: start: 2011, end: 2011
  65. ERYTHROMYCIN [Concomitant]
     Active Substance: ERYTHROMYCIN
     Dosage: UNK
     Route: 050
     Dates: start: 2012
  66. ATROVENT [Concomitant]
     Active Substance: IPRATROPIUM BROMIDE
     Indication: Respiratory disorder
     Dosage: UNK
     Route: 050
     Dates: start: 2006, end: 2006
  67. ENOXAPARIN SODIUM [Concomitant]
     Active Substance: ENOXAPARIN SODIUM
     Indication: Thrombosis
     Dosage: UNK
     Route: 058
     Dates: start: 20070329, end: 20070330
  68. ASPIRIN [Concomitant]
     Active Substance: ASPIRIN
     Indication: Thrombosis
     Dosage: UNK
     Route: 048
     Dates: start: 20070330, end: 20081009
  69. GENTISONE HC EAR DROPS [Concomitant]
     Indication: Otitis externa
     Dosage: UNK
     Route: 065
     Dates: start: 20070430, end: 20070614
  70. SERETIDE [Concomitant]
     Active Substance: FLUTICASONE PROPIONATE\SALMETEROL XINAFOATE
     Indication: Respiratory disorder
     Dosage: UNK
     Route: 055
     Dates: start: 20070522, end: 2011
  71. MOVICOL [Concomitant]
     Active Substance: POLYETHYLENE GLYCOL 3350\POTASSIUM CHLORIDE\SODIUM BICARBONATE\SODIUM CHLORIDE
     Indication: Constipation
     Dosage: UNK
     Route: 048
     Dates: start: 20070927, end: 20071027
  72. OMEPRAZOLE [Concomitant]
     Active Substance: OMEPRAZOLE
     Indication: Gastrointestinal disorder
     Dosage: UNK
     Route: 048
     Dates: start: 20080319, end: 2011
  73. CEFUROXIME [Concomitant]
     Active Substance: CEFUROXIME
     Dosage: UNK
     Route: 042
     Dates: start: 20081006, end: 20081020
  74. CEFUROXIME [Concomitant]
     Active Substance: CEFUROXIME
     Dosage: UNK
     Route: 042
     Dates: start: 200905, end: 200905
  75. CEFOTAXIME [Concomitant]
     Active Substance: CEFOTAXIME SODIUM
     Dosage: UNK
     Route: 042
     Dates: start: 20090804, end: 20090819
  76. CEFTAZIDIME [Concomitant]
     Active Substance: CEFTAZIDIME
     Indication: Dyspnoea
     Dosage: UNK
     Route: 042
     Dates: start: 20091028, end: 20091102
  77. TOBRAMYCIN [Concomitant]
     Active Substance: TOBRAMYCIN
     Indication: Anti-infective therapy
     Dosage: UNK
     Route: 042
     Dates: start: 20091029, end: 20091030
  78. TOBRAMYCIN [Concomitant]
     Active Substance: TOBRAMYCIN
     Dosage: UNK
     Route: 042
     Dates: start: 20091030, end: 20091031
  79. TOBRAMYCIN [Concomitant]
     Active Substance: TOBRAMYCIN
     Dosage: UNK
     Route: 042
     Dates: start: 20091030, end: 20091101
  80. TOBRAMYCIN [Concomitant]
     Active Substance: TOBRAMYCIN
     Dosage: UNK
     Route: 042
     Dates: start: 20091101, end: 20091115
  81. TOBRAMYCIN [Concomitant]
     Active Substance: TOBRAMYCIN
     Dosage: UNK
     Route: 042
     Dates: start: 20100630, end: 20100702
  82. TOBRAMYCIN [Concomitant]
     Active Substance: TOBRAMYCIN
     Dosage: UNK
     Route: 042
     Dates: start: 20100703, end: 20100705
  83. TOBRAMYCIN [Concomitant]
     Active Substance: TOBRAMYCIN
     Dosage: UNK
     Route: 042
     Dates: start: 20100705, end: 20100706
  84. TOBRAMYCIN [Concomitant]
     Active Substance: TOBRAMYCIN
     Dosage: UNK
     Route: 042
     Dates: start: 20101015, end: 20101029
  85. TOBRAMYCIN [Concomitant]
     Active Substance: TOBRAMYCIN
     Dosage: UNK
     Route: 042
     Dates: start: 20110115, end: 20110121
  86. MEROPENEM [Concomitant]
     Active Substance: MEROPENEM
     Indication: Anti-infective therapy
     Dosage: UNK
     Route: 042
     Dates: start: 20091102, end: 20091116
  87. AMOXICILLIN\CLAVULANATE POTASSIUM [Concomitant]
     Active Substance: AMOXICILLIN\CLAVULANATE POTASSIUM
     Indication: Anti-infective therapy
     Dosage: UNK
     Route: 048
     Dates: start: 201002, end: 201002
  88. AMOXICILLIN\CLAVULANATE POTASSIUM [Concomitant]
     Active Substance: AMOXICILLIN\CLAVULANATE POTASSIUM
     Indication: Ear infection
     Dosage: UNK
     Route: 048
     Dates: start: 201004, end: 201004
  89. AMOXICILLIN\CLAVULANATE POTASSIUM [Concomitant]
     Active Substance: AMOXICILLIN\CLAVULANATE POTASSIUM
     Dosage: UNK
     Route: 048
     Dates: start: 20101012, end: 201010
  90. AMOXICILLIN\CLAVULANATE POTASSIUM [Concomitant]
     Active Substance: AMOXICILLIN\CLAVULANATE POTASSIUM
     Dosage: UNK
     Route: 050
     Dates: start: 20110226, end: 20110227
  91. AMOXICILLIN\CLAVULANATE POTASSIUM [Concomitant]
     Active Substance: AMOXICILLIN\CLAVULANATE POTASSIUM
     Dosage: UNK
     Route: 050
     Dates: start: 201204, end: 201205
  92. Colomycin [Concomitant]
     Indication: Anti-infective therapy
     Dosage: UNK
     Route: 055
     Dates: start: 20100606, end: 20100701
  93. Colomycin [Concomitant]
     Dosage: UNK
     Route: 055
     Dates: start: 2011
  94. HEPARIN SODIUM [Concomitant]
     Active Substance: HEPARIN SODIUM
     Dosage: UNK
     Route: 042
     Dates: end: 20100704
  95. Hypertonic [Concomitant]
     Indication: Dyspnoea
     Dosage: UNK
     Route: 055
     Dates: start: 20100705, end: 20100706
  96. CARBAMAZEPINE [Concomitant]
     Active Substance: CARBAMAZEPINE
     Indication: Nervous system disorder
     Dosage: UNK
     Route: 065
     Dates: start: 20100824, end: 201009
  97. CARBAMAZEPINE [Concomitant]
     Active Substance: CARBAMAZEPINE
     Indication: Seizure
     Dosage: UNK
     Route: 065
     Dates: start: 201009, end: 20110916
  98. CARBAMAZEPINE [Concomitant]
     Active Substance: CARBAMAZEPINE
     Dosage: UNK
     Route: 065
     Dates: start: 201009, end: 2011
  99. CARBAMAZEPINE [Concomitant]
     Active Substance: CARBAMAZEPINE
     Dosage: UNK
     Route: 050
     Dates: start: 20110216, end: 20110330
  100. CARBAMAZEPINE [Concomitant]
     Active Substance: CARBAMAZEPINE
     Dosage: UNK
     Route: 050
     Dates: start: 20110330, end: 20110422
  101. CARBAMAZEPINE [Concomitant]
     Active Substance: CARBAMAZEPINE
     Dosage: UNK
     Route: 050
     Dates: start: 20110422, end: 2011
  102. CARBAMAZEPINE [Concomitant]
     Active Substance: CARBAMAZEPINE
     Dosage: UNK
     Route: 050
     Dates: start: 20111026
  103. SODIUM CHLORIDE [Concomitant]
     Active Substance: SODIUM CHLORIDE
     Dosage: UNK
     Route: 055
     Dates: start: 201009, end: 2011
  104. MIDAZOLAM [Concomitant]
     Active Substance: MIDAZOLAM
     Indication: Seizure
     Dosage: UNK
     Route: 048
     Dates: start: 20100928
  105. MIDAZOLAM [Concomitant]
     Active Substance: MIDAZOLAM
     Dosage: UNK
     Route: 048
     Dates: start: 20110127, end: 20110127
  106. MIDAZOLAM [Concomitant]
     Active Substance: MIDAZOLAM
     Dosage: UNK
     Route: 042
     Dates: start: 20110215, end: 20110220
  107. MIDAZOLAM [Concomitant]
     Active Substance: MIDAZOLAM
     Dosage: UNK
     Route: 042
     Dates: start: 20110215, end: 20110510
  108. MIDAZOLAM [Concomitant]
     Active Substance: MIDAZOLAM
     Dosage: UNK
     Route: 042
     Dates: start: 20110221, end: 20110221
  109. MIDAZOLAM [Concomitant]
     Active Substance: MIDAZOLAM
     Dosage: UNK
     Route: 042
     Dates: start: 20110226, end: 20110227
  110. MIDAZOLAM [Concomitant]
     Active Substance: MIDAZOLAM
     Dosage: UNK
     Route: 042
     Dates: start: 20110304, end: 2011
  111. MIDAZOLAM [Concomitant]
     Active Substance: MIDAZOLAM
     Dosage: UNK
     Route: 042
     Dates: start: 20110314, end: 2011
  112. MIDAZOLAM [Concomitant]
     Active Substance: MIDAZOLAM
     Dosage: UNK
     Route: 042
     Dates: start: 20111104, end: 20111104
  113. AMOROLFINE [Concomitant]
     Active Substance: AMOROLFINE
     Indication: Onychomycosis
     Dosage: UNK
     Route: 061
     Dates: start: 2011, end: 2011
  114. Calogen [Concomitant]
     Indication: Supplementation therapy
     Dosage: UNK
     Route: 065
     Dates: start: 2011
  115. CHLORPHENIRAMINE MALEATE [Concomitant]
     Active Substance: CHLORPHENIRAMINE MALEATE
     Indication: Premedication
  116. DIAZEPAM [Concomitant]
     Active Substance: DIAZEPAM
     Indication: Gastrostomy
     Dosage: UNK
     Route: 065
     Dates: start: 2011
  117. DIAZEPAM [Concomitant]
     Active Substance: DIAZEPAM
     Dosage: UNK
     Route: 065
     Dates: start: 2011, end: 20110314
  118. DIAZEPAM [Concomitant]
     Active Substance: DIAZEPAM
     Dosage: UNK
     Route: 065
     Dates: start: 20110307, end: 20110323
  119. DIAZEPAM [Concomitant]
     Active Substance: DIAZEPAM
     Dosage: UNK
     Route: 065
     Dates: start: 20110323, end: 20110416
  120. FENTANYL [Concomitant]
     Active Substance: FENTANYL
     Indication: Abdominal pain
     Dosage: UNK
     Route: 062
     Dates: start: 2011, end: 2011
  121. IBUPROFEN [Concomitant]
     Active Substance: IBUPROFEN
     Indication: Abdominal pain
     Dosage: UNK
     Route: 065
     Dates: start: 2011
  122. MORPHINE [Concomitant]
     Active Substance: MORPHINE
     Indication: Pain
  123. NALTREXONE [Concomitant]
     Active Substance: NALTREXONE
  124. OLIVE OIL [Concomitant]
     Active Substance: OLIVE OIL
     Route: 061
  125. SALMETEROL [Concomitant]
     Active Substance: SALMETEROL
     Indication: Bronchospasm
     Dosage: UNK
     Route: 055
     Dates: start: 2011
  126. BUTYLSCOPOLAMINE BROMIDE [Concomitant]
     Active Substance: BUTYLSCOPOLAMINE BROMIDE
     Indication: Abdominal pain
     Dosage: UNK
     Route: 065
     Dates: start: 20110118
  127. POTASSIUM CHLORIDE [Concomitant]
     Active Substance: POTASSIUM CHLORIDE
  128. MEBEVERINE [Concomitant]
     Active Substance: MEBEVERINE
     Indication: Abdominal pain
     Dosage: UNK
     Route: 065
     Dates: start: 20110127, end: 20110513
  129. ATRACURIUM [Concomitant]
     Active Substance: ATRACURIUM
     Indication: Hypoventilation
  130. TEICOPLANIN [Concomitant]
     Active Substance: TEICOPLANIN
     Indication: Lower respiratory tract infection
     Dosage: UNK
     Route: 042
     Dates: start: 20110215, end: 20110216
  131. FLUTICASONE [Concomitant]
     Active Substance: FLUTICASONE
     Indication: Wheezing
     Dosage: UNK
     Route: 055
     Dates: start: 20110216, end: 20110306
  132. Ametop [Concomitant]
     Indication: Analgesic therapy
     Dosage: UNK
     Route: 061
     Dates: start: 20110219, end: 20110219
  133. OSELTAMIVIR [Concomitant]
     Active Substance: OSELTAMIVIR
     Indication: Influenza B virus test
     Dosage: UNK
     Route: 065
     Dates: start: 20110219, end: 20110224
  134. ROCURONIUM [Concomitant]
     Active Substance: ROCURONIUM BROMIDE
     Dosage: UNK
     Route: 042
     Dates: start: 20110219
  135. MICONAZOLE NITRATE [Concomitant]
     Active Substance: MICONAZOLE NITRATE
     Indication: Candida infection
     Dosage: UNK
     Route: 061
     Dates: start: 20110225, end: 20110302
  136. KETAMINE [Concomitant]
     Active Substance: KETAMINE
     Indication: Analgesic therapy
     Dosage: UNK
     Route: 042
     Dates: start: 20110303, end: 20110416
  137. SUCRALFATE [Concomitant]
     Active Substance: SUCRALFATE
     Dosage: UNK
     Route: 065
     Dates: start: 20110302, end: 20110325
  138. PEPPERMINT OIL [Concomitant]
     Active Substance: PEPPERMINT OIL
     Indication: Gastric disorder
     Dosage: UNK
     Route: 065
     Dates: start: 20111229, end: 201201
  139. TRIMEPRAZINE [Concomitant]
     Active Substance: TRIMEPRAZINE
     Indication: African trypanosomiasis
     Dosage: UNK
     Route: 065
     Dates: start: 2012
  140. CLONIDINE [Concomitant]
     Active Substance: CLONIDINE
     Dosage: UNK
     Route: 050
     Dates: start: 2011, end: 20110504
  141. FUROSEMIDE [Concomitant]
     Active Substance: FUROSEMIDE
     Indication: Lower respiratory tract infection
     Dosage: UNK
     Route: 042
     Dates: start: 20110215, end: 20110215
  142. FUROSEMIDE [Concomitant]
     Active Substance: FUROSEMIDE
     Dosage: UNK
     Route: 042
     Dates: start: 20110217, end: 20110217
  143. FUROSEMIDE [Concomitant]
     Active Substance: FUROSEMIDE
     Dosage: UNK
     Route: 042
     Dates: start: 20110218, end: 20110218
  144. FUROSEMIDE [Concomitant]
     Active Substance: FUROSEMIDE
     Dosage: UNK
     Route: 042
     Dates: start: 20110304, end: 20110307
  145. FUROSEMIDE [Concomitant]
     Active Substance: FUROSEMIDE
     Dosage: UNK
     Route: 042
     Dates: start: 20110313, end: 2011
  146. FUROSEMIDE [Concomitant]
     Active Substance: FUROSEMIDE
     Dosage: UNK
     Route: 042
     Dates: start: 20110317, end: 20110320
  147. FUROSEMIDE [Concomitant]
     Active Substance: FUROSEMIDE
     Dosage: UNK
     Route: 042
     Dates: start: 20110320, end: 20110324
  148. FUROSEMIDE [Concomitant]
     Active Substance: FUROSEMIDE
     Dosage: UNK
     Route: 042
     Dates: start: 20110325, end: 20110331
  149. FUROSEMIDE [Concomitant]
     Active Substance: FUROSEMIDE
     Dosage: UNK
     Route: 042
     Dates: start: 20110401, end: 20110402
  150. FUROSEMIDE [Concomitant]
     Active Substance: FUROSEMIDE
     Dosage: UNK
     Route: 042
     Dates: start: 20110405, end: 20110415
  151. FUROSEMIDE [Concomitant]
     Active Substance: FUROSEMIDE
     Dosage: UNK
     Route: 042
     Dates: start: 20110406, end: 2011
  152. FUROSEMIDE [Concomitant]
     Active Substance: FUROSEMIDE
     Dosage: UNK
     Route: 042
     Dates: start: 20110415, end: 2011
  153. SODIUM CITRATE\SODIUM LAURYL SULFOACETATE\SORBITOL [Concomitant]
     Active Substance: SODIUM CITRATE\SODIUM LAURYL SULFOACETATE\SORBITOL
     Indication: Constipation
     Dosage: UNK
     Route: 054
     Dates: start: 20120311, end: 201203
  154. RIFAXIMIN [Concomitant]
     Active Substance: RIFAXIMIN
     Indication: Abdominal distension
     Dosage: UNK
     Route: 050
     Dates: start: 20120123
  155. RIFAXIMIN [Concomitant]
     Active Substance: RIFAXIMIN
     Dosage: UNK
     Route: 050
     Dates: start: 20111229, end: 20120101
  156. RISPERIDONE [Concomitant]
     Active Substance: RISPERIDONE
     Indication: Agitation
     Dosage: UNK
     Route: 050
     Dates: start: 20110507, end: 20110508
  157. LEVETIRACETAM [Concomitant]
     Active Substance: LEVETIRACETAM
     Indication: Influenza
     Dosage: UNK
     Route: 050
     Dates: start: 20110915, end: 20110929
  158. LEVETIRACETAM [Concomitant]
     Active Substance: LEVETIRACETAM
     Dosage: UNK
     Route: 050
     Dates: start: 20110929
  159. METRONIDAZOLE [Concomitant]
     Active Substance: METRONIDAZOLE
     Indication: Overgrowth bacterial
     Dosage: UNK
     Route: 050
     Dates: start: 20111013, end: 20111020
  160. METRONIDAZOLE [Concomitant]
     Active Substance: METRONIDAZOLE
     Dosage: UNK
     Route: 050
     Dates: start: 20110215, end: 20110217
  161. METRONIDAZOLE [Concomitant]
     Active Substance: METRONIDAZOLE
     Dosage: UNK
     Route: 050
     Dates: start: 20110314, end: 20110328
  162. METRONIDAZOLE [Concomitant]
     Active Substance: METRONIDAZOLE
     Dosage: UNK
     Route: 050
     Dates: start: 20110408, end: 20110422
  163. PIPERACILLIN SODIUM\TAZOBACTAM SODIUM [Concomitant]
     Active Substance: PIPERACILLIN SODIUM\TAZOBACTAM SODIUM
     Indication: Infection
     Dosage: UNK
     Route: 042
     Dates: start: 20110329, end: 20110415
  164. PIPERACILLIN SODIUM\TAZOBACTAM SODIUM [Concomitant]
     Active Substance: PIPERACILLIN SODIUM\TAZOBACTAM SODIUM
     Dosage: UNK
     Route: 042
     Dates: start: 20110407, end: 2011
  165. Gelofusine [Concomitant]
     Dosage: UNK
     Route: 042
     Dates: start: 20110331, end: 20110331
  166. Gelofusine [Concomitant]
     Dosage: UNK
     Route: 042
     Dates: start: 20110315, end: 20110315
  167. Gelofusine [Concomitant]
     Dosage: UNK
     Route: 042
     Dates: start: 20110315, end: 20110316
  168. CHLOROTHIAZIDE [Concomitant]
     Active Substance: CHLOROTHIAZIDE
     Indication: Hypertension
     Dosage: UNK
     Route: 050
     Dates: start: 20110403, end: 2011
  169. SPIRONOLACTONE [Concomitant]
     Active Substance: SPIRONOLACTONE
     Indication: Oedema
     Dosage: UNK
     Route: 050
     Dates: start: 20110403, end: 2011
  170. GABAPENTIN [Concomitant]
     Active Substance: GABAPENTIN
     Indication: Abdominal pain
     Dosage: UNK
     Route: 050
     Dates: start: 20110321, end: 20110322
  171. GABAPENTIN [Concomitant]
     Active Substance: GABAPENTIN
     Dosage: UNK
     Route: 050
     Dates: start: 20110322, end: 20110329
  172. GABAPENTIN [Concomitant]
     Active Substance: GABAPENTIN
     Dosage: UNK
     Route: 050
     Dates: start: 20110324, end: 20110404
  173. GABAPENTIN [Concomitant]
     Active Substance: GABAPENTIN
     Dosage: UNK
     Route: 050
     Dates: start: 20110329, end: 2011
  174. GABAPENTIN [Concomitant]
     Active Substance: GABAPENTIN
     Dosage: UNK
     Route: 050
     Dates: start: 20110404, end: 2011
  175. SCOPOLAMINE [Concomitant]
     Active Substance: SCOPOLAMINE
     Dosage: UNK
     Route: 042
     Dates: start: 20110404, end: 20110405
  176. SCOPOLAMINE [Concomitant]
     Active Substance: SCOPOLAMINE
     Dosage: UNK
     Route: 050
     Dates: start: 20110225, end: 20110417
  177. OCTREOTIDE [Concomitant]
     Active Substance: OCTREOTIDE
     Indication: Gastrointestinal motility disorder
     Dosage: UNK
     Route: 058
     Dates: start: 20110405, end: 2011
  178. OCTREOTIDE [Concomitant]
     Active Substance: OCTREOTIDE
     Dosage: UNK
     Route: 058
     Dates: start: 20110505, end: 20110507
  179. OCTREOTIDE [Concomitant]
     Active Substance: OCTREOTIDE
     Dosage: UNK
     Route: 058
     Dates: start: 20110507, end: 2011
  180. HALOPERIDOL [Concomitant]
     Active Substance: HALOPERIDOL
     Indication: Agitation
     Dosage: UNK
     Route: 050
     Dates: start: 20110407, end: 20110416
  181. HALOPERIDOL [Concomitant]
     Active Substance: HALOPERIDOL
     Dosage: UNK
     Route: 050
     Dates: start: 20110417, end: 20110418
  182. VSL [Concomitant]
     Indication: Abdominal pain
     Dosage: UNK
     Route: 050
     Dates: start: 20111122

REACTIONS (4)
  - Device dislocation [Recovered/Resolved]
  - Weight gain poor [Recovered/Resolved]
  - Aspiration [Recovered/Resolved]
  - Umbilical hernia [Recovered/Resolved]

NARRATIVE: CASE EVENT DATE: 20081211
